FAERS Safety Report 9205249 (Version 1)
Quarter: 2013Q2

REPORT INFORMATION
  Report Type: Report from Study
  Country: US (occurrence: US)
  Receive Date: 20130402
  Receipt Date: 20130402
  Transmission Date: 20140414
  Serious: Yes (Hospitalization)
  Sender: FDA-Public Use
  Company Number: US-ELI_LILLY_AND_COMPANY-US201303010149

PATIENT
  Age: 38 Year
  Sex: Male

DRUGS (1)
  1. EXENATIDE [Suspect]
     Dosage: 9 MG, OTHER
     Route: 058
     Dates: start: 20130226, end: 20130312

REACTIONS (5)
  - Cardiac arrest [Unknown]
  - Nausea [None]
  - Vomiting [None]
  - Fall [None]
  - Pneumonia [None]
